FAERS Safety Report 4480993-7 (Version None)
Quarter: 2004Q4

REPORT INFORMATION
  Report Type: 
  Country: None (occurrence: None)
  Receive Date: 20041020
  Receipt Date: 20041020
  Transmission Date: 20050328
  Serious: Yes (Disabling)
  Sender: FDA-Public Use
  Company Number: None

PATIENT
  Age: 66 Year
  Sex: Female
  Weight: 49.8957 kg

DRUGS (3)
  1. LEVAQUIN [Suspect]
     Indication: CELLULITIS
     Dosage: 500 ONE QD
     Dates: start: 20040606, end: 20040611
  2. LEVAQUIN [Suspect]
     Indication: POST PROCEDURAL COMPLICATION
     Dosage: 500 ONE QD
     Dates: start: 20040606, end: 20040611
  3. LEVAQUIN [Suspect]
     Indication: SEROMA
     Dosage: 500 ONE QD
     Dates: start: 20040606, end: 20040611

REACTIONS (5)
  - ABASIA [None]
  - ARTHRALGIA [None]
  - MYALGIA [None]
  - OEDEMA PERIPHERAL [None]
  - TENDON DISORDER [None]
